FAERS Safety Report 18495715 (Version 1)
Quarter: 2020Q4

REPORT INFORMATION
  Report Type: Spontaneous
  Country: JP (occurrence: JP)
  Receive Date: 20201112
  Receipt Date: 20201112
  Transmission Date: 20210114
  Serious: Yes (Other)
  Sender: FDA-Public Use
  Company Number: JP-SLATE RUN PHARMACEUTICALS-20JP000320

PATIENT

DRUGS (3)
  1. VORICONAZOLE. [Suspect]
     Active Substance: VORICONAZOLE
     Dosage: 700 MILLIGRAM, QD
     Route: 042
  2. VORICONAZOLE. [Suspect]
     Active Substance: VORICONAZOLE
     Indication: PNEUMONIA CRYPTOCOCCAL
     Dosage: 460 MILLIGRAM, QD
     Route: 042
  3. FLUCONAZOLE. [Concomitant]
     Active Substance: FLUCONAZOLE
     Indication: PNEUMONIA CRYPTOCOCCAL
     Dosage: 400 MILLIGRAM, QD
     Route: 065

REACTIONS (5)
  - Treatment failure [Unknown]
  - Off label use [Unknown]
  - Drug resistance [Recovered/Resolved]
  - Disseminated cryptococcosis [Recovered/Resolved]
  - C-reactive protein increased [Recovered/Resolved]
